FAERS Safety Report 8461711-4 (Version None)
Quarter: 2012Q2

REPORT INFORMATION
  Report Type: 
  Country: None (occurrence: None)
  Receive Date: 20120625
  Receipt Date: 20120621
  Transmission Date: 20120825
  Serious: Yes (Disabling)
  Sender: FDA-Public Use
  Company Number: PHHY2012GR053592

PATIENT
  Sex: Female

DRUGS (3)
  1. TAXOTERE [Concomitant]
     Indication: CHEMOTHERAPY
     Dosage: 70 MG
     Dates: start: 20120131
  2. ZOLEDRONOC ACID [Suspect]
     Dosage: 4 MG
     Route: 042
     Dates: start: 20100520, end: 20120214
  3. GEMCITABINE [Concomitant]
     Indication: CHEMOTHERAPY
     Dosage: 2100 MG
     Dates: start: 20120131

REACTIONS (1)
  - OSTEONECROSIS OF JAW [None]
